FAERS Safety Report 6266770-5 (Version None)
Quarter: 2009Q3

REPORT INFORMATION
  Report Type: 
  Country: None (occurrence: None)
  Receive Date: 20090710
  Receipt Date: 20090710
  Transmission Date: 20100115
  Serious: Yes (Death)
  Sender: FDA-Public Use
  Company Number: None

PATIENT
  Sex: Female

DRUGS (2)
  1. OXYGEN [Suspect]
     Indication: CHRONIC OBSTRUCTIVE PULMONARY DISEASE
     Dosage: 2 LITERS PER MINUTE CONTINUOUS
     Dates: start: 20090416, end: 20090704
  2. CPAP MACHINE [Concomitant]

REACTIONS (1)
  - MEDICATION ERROR [None]
